FAERS Safety Report 4964575-6 (Version None)
Quarter: 2006Q2

REPORT INFORMATION
  Report Type: 
  Country: None (occurrence: None)
  Receive Date: 20060406
  Receipt Date: 20060324
  Transmission Date: 20061013
  Serious: Yes (Hospitalization)
  Sender: FDA-Public Use
  Company Number: US-ROCHE-442129

PATIENT
  Age: 67 Year
  Sex: Female

DRUGS (4)
  1. BONIVA [Suspect]
     Indication: OSTEOPOROSIS
     Route: 048
     Dates: start: 20060305
  2. PREDNISONE [Concomitant]
     Indication: RHEUMATOID ARTHRITIS
     Route: 065
  3. ENBREL [Concomitant]
     Indication: RHEUMATOID ARTHRITIS
     Route: 065
  4. TOPROL-XL [Concomitant]
     Indication: HYPERTENSION
     Route: 065

REACTIONS (7)
  - BLOOD CALCIUM DECREASED [None]
  - HYPERHIDROSIS [None]
  - MUSCLE SPASMS [None]
  - OROPHARYNGEAL SPASM [None]
  - PHARYNGOLARYNGEAL PAIN [None]
  - THROAT TIGHTNESS [None]
  - VISION BLURRED [None]
